FAERS Safety Report 4925188-5 (Version None)
Quarter: 2006Q1

REPORT INFORMATION
  Report Type: 
  Country: None (occurrence: None)
  Receive Date: 20060228
  Receipt Date: 20060111
  Transmission Date: 20060701
  Serious: No
  Sender: FDA-Public Use
  Company Number: US-GLAXOSMITHKLINE-A0589293A

PATIENT
  Sex: Male

DRUGS (2)
  1. AVODART [Suspect]
     Route: 048
  2. CARDURA [Suspect]
     Dosage: 2MG UNKNOWN
     Route: 065

REACTIONS (2)
  - PRURITUS [None]
  - RASH MACULAR [None]
